FAERS Safety Report 4825281-1 (Version None)
Quarter: 2005Q4

REPORT INFORMATION
  Report Type: 
  Country: None (occurrence: None)
  Receive Date: 20051109
  Receipt Date: 20051028
  Transmission Date: 20060501
  Serious: Yes (Hospitalization)
  Sender: FDA-Public Use
  Company Number: 200513713GDS

PATIENT
  Age: 74 Year
  Sex: Female

DRUGS (9)
  1. ASPIRIN [Suspect]
     Dosage: 100 MG, TOTAL DAILY, ORAL
     Route: 048
     Dates: end: 20051011
  2. PLAVIX [Suspect]
     Dosage: 75 MG, TOTAL DAILY, ORAL
     Route: 048
     Dates: end: 20051011
  3. FOSAMAX [Concomitant]
  4. TEMESTA [Concomitant]
  5. CALCIMAGON-D3 [Concomitant]
  6. DUSPATALIN [Concomitant]
  7. SORTIS [Concomitant]
  8. BELOC-ZOK [Concomitant]
  9. ANALGESICS (NOS) [Concomitant]

REACTIONS (4)
  - BONE PAIN [None]
  - PARAESTHESIA [None]
  - SHOULDER PAIN [None]
  - SPINAL HAEMATOMA [None]
